FAERS Safety Report 16842166 (Version 1)
Quarter: 2019Q3

REPORT INFORMATION
  Report Type: Spontaneous
  Country: JP (occurrence: JP)
  Receive Date: 20190923
  Receipt Date: 20190923
  Transmission Date: 20191005
  Serious: Yes (Hospitalization)
  Sender: FDA-Public Use
  Company Number: JP-BAXTER-2019BAX018605

PATIENT
  Age: 57 Year
  Sex: Female

DRUGS (18)
  1. G-LASTA [Suspect]
     Active Substance: PEGFILGRASTIM
     Dosage: GENETICAL RECOMBINATION
     Route: 065
     Dates: start: 20190223, end: 20190223
  2. RINDERON [BETAMETHASONE] [Suspect]
     Active Substance: BETAMETHASONE
     Dosage: AT CYCLES 3 AND 4 OF ENDOXAN AND DOCETAXEL
     Route: 065
  3. GRANISETRON HYDROCHLORIDE. [Suspect]
     Active Substance: GRANISETRON HYDROCHLORIDE
     Indication: PRODUCT USED FOR UNKNOWN INDICATION
     Route: 065
     Dates: start: 20190111, end: 20190315
  4. ENDOXAN 1G [Suspect]
     Active Substance: CYCLOPHOSPHAMIDE
     Dosage: CYCLE 2
     Route: 041
     Dates: start: 20190201
  5. DOCETAXEL. [Suspect]
     Active Substance: DOCETAXEL
     Dosage: CYCLE 2
     Route: 041
     Dates: start: 20190201
  6. DOCETAXEL. [Suspect]
     Active Substance: DOCETAXEL
     Dosage: CYCLE 3
     Route: 041
     Dates: start: 20190222
  7. ENDOXAN 1G [Suspect]
     Active Substance: CYCLOPHOSPHAMIDE
     Dosage: CYCLE 4
     Route: 041
     Dates: start: 20190315
  8. DOCETAXEL. [Suspect]
     Active Substance: DOCETAXEL
     Dosage: CYCLE 4
     Route: 041
     Dates: start: 20190315
  9. G-LASTA [Suspect]
     Active Substance: PEGFILGRASTIM
     Dosage: GENETICAL RECOMBINATION
     Route: 065
     Dates: start: 20190316, end: 20190316
  10. DEXART [Suspect]
     Active Substance: DEXAMETHASONE SODIUM PHOSPHATE
     Indication: PRODUCT USED FOR UNKNOWN INDICATION
     Route: 065
     Dates: start: 20190111, end: 20190315
  11. RINDERON [BETAMETHASONE] [Suspect]
     Active Substance: BETAMETHASONE
     Indication: DRUG ERUPTION
     Dosage: 1 MG/DAY, FOR A WEEK
     Route: 048
     Dates: start: 20190212
  12. ALLELOCK [Suspect]
     Active Substance: OLOPATADINE HYDROCHLORIDE
     Indication: DRUG ERUPTION
     Dosage: 10 MG/DAY, FOR A WEEK
     Route: 048
     Dates: start: 20190212
  13. ENDOXAN 1G [Suspect]
     Active Substance: CYCLOPHOSPHAMIDE
     Indication: BREAST CANCER
     Dosage: CYCLE 1
     Route: 041
     Dates: start: 20190111
  14. ENDOXAN 1G [Suspect]
     Active Substance: CYCLOPHOSPHAMIDE
     Dosage: CYCLE 3
     Route: 041
     Dates: start: 20190222
  15. DOCETAXEL. [Suspect]
     Active Substance: DOCETAXEL
     Indication: BREAST CANCER
     Dosage: CYCLE 1
     Route: 041
     Dates: start: 20190111
  16. G-LASTA [Suspect]
     Active Substance: PEGFILGRASTIM
     Indication: PRODUCT USED FOR UNKNOWN INDICATION
     Dosage: GENETICAL RECOMBINATION
     Route: 065
     Dates: start: 20190202, end: 20190202
  17. ALLELOCK [Suspect]
     Active Substance: OLOPATADINE HYDROCHLORIDE
     Dosage: AT CYCLES 3 AND 4 OF ENDOXAN AND DOCETAXEL
     Route: 065
  18. DECADRON [Suspect]
     Active Substance: DEXAMETHASONE
     Indication: PRODUCT USED FOR UNKNOWN INDICATION
     Route: 065
     Dates: start: 20190111, end: 20190317

REACTIONS (3)
  - Lung disorder [Recovering/Resolving]
  - Drug eruption [Unknown]
  - Malaise [Unknown]

NARRATIVE: CASE EVENT DATE: 20190212
